FAERS Safety Report 17092908 (Version 1)
Quarter: 2019Q4

REPORT INFORMATION
  Report Type: Spontaneous
  Country: US (occurrence: US)
  Receive Date: 20191129
  Receipt Date: 20191129
  Transmission Date: 20200122
  Serious: Yes (Other)
  Sender: FDA-Public Use
  Company Number: US-BRISTOL-MYERS SQUIBB COMPANY-BMS-2019-112146

PATIENT
  Sex: Male
  Weight: 74.84 kg

DRUGS (2)
  1. OPDIVO [Suspect]
     Active Substance: NIVOLUMAB
     Indication: COLORECTAL CANCER METASTATIC
     Dosage: 480 MILLIGRAM, Q4WK
     Route: 065
     Dates: start: 20190910, end: 20191008
  2. VENOFER [Suspect]
     Active Substance: IRON SUCROSE
     Indication: PRODUCT USED FOR UNKNOWN INDICATION
     Dosage: UNK
     Route: 065
     Dates: start: 20191008

REACTIONS (6)
  - Blood pressure decreased [Unknown]
  - Feeling cold [Unknown]
  - Aphasia [Unknown]
  - Infusion related reaction [Unknown]
  - Apnoea [Unknown]
  - Flushing [Unknown]
